FAERS Safety Report 12845394 (Version 1)
Quarter: 2016Q4

REPORT INFORMATION
  Report Type: Spontaneous
  Country: US (occurrence: US)
  Receive Date: 20161013
  Receipt Date: 20161013
  Transmission Date: 20170207
  Serious: No
  Sender: FDA-Public Use
  Company Number: US-JAZZ-2016-US-013457

PATIENT
  Sex: Female

DRUGS (34)
  1. ARMOUR THYROID [Concomitant]
     Active Substance: THYROID, PORCINE
  2. XARELTO [Concomitant]
     Active Substance: RIVAROXABAN
  3. PROGESTERONE. [Concomitant]
     Active Substance: PROGESTERONE
  4. FLECAINIDE ACETATE. [Concomitant]
     Active Substance: FLECAINIDE ACETATE
  5. RITALIN [Concomitant]
     Active Substance: METHYLPHENIDATE HYDROCHLORIDE
  6. ULTRAM [Concomitant]
     Active Substance: TRAMADOL HYDROCHLORIDE
  7. AMITRIPTYLINE HCL [Concomitant]
     Active Substance: AMITRIPTYLINE
  8. TRAMADOL HCL [Concomitant]
     Active Substance: TRAMADOL HYDROCHLORIDE
  9. MELATONIN [Concomitant]
     Active Substance: MELATONIN
  10. METOPROLOL SUCCINATE. [Concomitant]
     Active Substance: METOPROLOL SUCCINATE
  11. ALPRAZOLAM. [Concomitant]
     Active Substance: ALPRAZOLAM
  12. KLONOPIN [Concomitant]
     Active Substance: CLONAZEPAM
  13. XYREM [Suspect]
     Active Substance: SODIUM OXYBATE
     Indication: APNOEA
     Dosage: 3 G, BID
     Route: 048
     Dates: start: 200803, end: 200803
  14. XYREM [Suspect]
     Active Substance: SODIUM OXYBATE
     Dosage: 4.5 G, BID
     Route: 048
     Dates: start: 201603, end: 2016
  15. WELLBUTRIN [Concomitant]
     Active Substance: BUPROPION HYDROCHLORIDE
  16. MULTAQ [Concomitant]
     Active Substance: DRONEDARONE
  17. CYTOMEL [Concomitant]
     Active Substance: LIOTHYRONINE SODIUM
  18. SERTRALINE HCL [Concomitant]
     Active Substance: SERTRALINE HYDROCHLORIDE
  19. SYNTHROID [Concomitant]
     Active Substance: LEVOTHYROXINE SODIUM
  20. XYREM [Suspect]
     Active Substance: SODIUM OXYBATE
     Dosage: DOSE ADJSUTMENTS
     Route: 048
     Dates: start: 200803, end: 201603
  21. TESTOSTERONE CYPIONATE. [Concomitant]
     Active Substance: TESTOSTERONE CYPIONATE
  22. 5-HTP [Concomitant]
     Active Substance: OXITRIPTAN
  23. CYANOCOBALAMIN. [Concomitant]
     Active Substance: CYANOCOBALAMIN
  24. MULTIVITAMINS [Concomitant]
     Active Substance: VITAMINS
  25. CLONAZEPAM. [Concomitant]
     Active Substance: CLONAZEPAM
  26. PROPAFENONE HCL [Concomitant]
     Active Substance: PROPAFENONE HYDROCHLORIDE
  27. ATIVAN [Concomitant]
     Active Substance: LORAZEPAM
  28. VALTREX [Concomitant]
     Active Substance: VALACYCLOVIR HYDROCHLORIDE
  29. DHEA [Concomitant]
     Active Substance: PRASTERONE
  30. IRON [Concomitant]
     Active Substance: IRON
  31. ZOLOFT [Concomitant]
     Active Substance: SERTRALINE HYDROCHLORIDE
  32. EFFEXOR [Concomitant]
     Active Substance: VENLAFAXINE HYDROCHLORIDE
  33. ASPIRIN. [Concomitant]
     Active Substance: ASPIRIN
  34. DILTIAZEM. [Concomitant]
     Active Substance: DILTIAZEM

REACTIONS (2)
  - Hallucination [Unknown]
  - Feeling abnormal [Unknown]
